FAERS Safety Report 10069917 (Version 1)
Quarter: 2014Q2

REPORT INFORMATION
  Report Type: Spontaneous
  Country: US (occurrence: US)
  Receive Date: 20140410
  Receipt Date: 20140410
  Transmission Date: 20141212
  Serious: No
  Sender: FDA-Public Use
  Company Number: US-JNJFOC-20140319497

PATIENT
  Sex: Female
  Weight: 81.65 kg

DRUGS (2)
  1. FENTANYL [Suspect]
     Indication: PAIN
     Route: 062
     Dates: start: 2008
  2. FENTANYL [Suspect]
     Indication: PAIN
     Route: 062
     Dates: start: 2008

REACTIONS (2)
  - Drug dose omission [Unknown]
  - Product adhesion issue [Unknown]
